FAERS Safety Report 9300600 (Version 3)
Quarter: 2013Q2

REPORT INFORMATION
  Report Type: Spontaneous
  Country: US (occurrence: US)
  Receive Date: 20130521
  Receipt Date: 20130617
  Transmission Date: 20140414
  Serious: Yes (Other)
  Sender: FDA-Public Use
  Company Number: US-AMGEN-USASP2013035468

PATIENT
  Age: 48 Year
  Sex: Female
  Weight: 117.91 kg

DRUGS (1)
  1. ENBREL [Suspect]
     Indication: PSORIASIS
     Dosage: 50 MG, QWK
     Route: 058
     Dates: start: 200809, end: 201209

REACTIONS (5)
  - Hodgkin^s disease [Unknown]
  - Upper respiratory tract infection [Recovered/Resolved]
  - Herpes simplex [Recovered/Resolved]
  - Sinusitis [Recovered/Resolved]
  - Lymphadenopathy [Not Recovered/Not Resolved]
